FAERS Safety Report 24827661 (Version 1)
Quarter: 2025Q1

REPORT INFORMATION
  Report Type: Report from Study
  Country: KR (occurrence: KR)
  Receive Date: 20250109
  Receipt Date: 20250109
  Transmission Date: 20250409
  Serious: Yes (Other)
  Sender: JAZZ
  Company Number: KR-BR-LTD-OS-401-001-008

PATIENT
  Age: 64 Year
  Sex: Male
  Weight: 68.3 kg

DRUGS (8)
  1. LURBINECTEDIN [Suspect]
     Active Substance: LURBINECTEDIN
     Indication: Product used for unknown indication
     Dosage: 2.2 MILLIGRAM/SQ. METER, Q3W
     Route: 042
     Dates: start: 20240222
  2. DIOVAN [Concomitant]
     Active Substance: VALSARTAN
     Indication: Hypertension
     Dosage: 80 MILLIGRAM, QD
     Route: 048
     Dates: start: 201201, end: 202402
  3. DIOVAN [Concomitant]
     Active Substance: VALSARTAN
     Dosage: 80 MILLIGRAM, QD
     Route: 048
     Dates: start: 201201, end: 202402
  4. ALOXI [Concomitant]
     Active Substance: PALONOSETRON HYDROCHLORIDE
     Indication: Prophylaxis
     Dosage: 0.25 MILLIGRAM, QD
     Route: 042
     Dates: start: 20240105, end: 20240105
  5. DEXAMETHASONE [Concomitant]
     Active Substance: DEXAMETHASONE
     Indication: Prophylaxis
     Dosage: 10 MILLIGRAM, QD
     Route: 042
     Dates: start: 20240105, end: 20240105
  6. DEXAMETHASONE [Concomitant]
     Active Substance: DEXAMETHASONE
     Dosage: 10 MILLIGRAM, QD
     Route: 042
     Dates: start: 20240105, end: 20240105
  7. TAZOPERAN [Concomitant]
     Indication: Prophylaxis
     Dosage: 4.5 GRAM, QOD
     Route: 042
     Dates: start: 20240114, end: 20240115
  8. TAZOPERAN [Concomitant]
     Indication: Febrile neutropenia
     Dosage: 2.25 GRAM, QOD
     Route: 042
     Dates: start: 20240116, end: 20240119

REACTIONS (2)
  - Febrile neutropenia [Not Recovered/Not Resolved]
  - Asthenia [Not Recovered/Not Resolved]

NARRATIVE: CASE EVENT DATE: 20240122
